FAERS Safety Report 5651231-4 (Version None)
Quarter: 2008Q1

REPORT INFORMATION
  Report Type: 
  Country: None (occurrence: None)
  Receive Date: 20080131
  Receipt Date: 20070929
  Transmission Date: 20080703
  Serious: No
  Sender: FDA-Public Use
  Company Number: US200710000410

PATIENT
  Age: 53 Year
  Sex: Female

DRUGS (5)
  1. BYETTA [Suspect]
     Indication: TYPE 2 DIABETES MELLITUS
     Dosage: 5 UG, 2/D, SUBCUTANEOUS ; 10 UG, 2/D, SUBCUTANEOUS
     Route: 058
     Dates: start: 20070801, end: 20070922
  2. BYETTA [Suspect]
     Indication: TYPE 2 DIABETES MELLITUS
     Dosage: 5 UG, 2/D, SUBCUTANEOUS ; 10 UG, 2/D, SUBCUTANEOUS
     Route: 058
     Dates: start: 20070923
  3. METFORMIN HCL [Concomitant]
  4. PRANDIN /USA/ (REPAGLINIDE) [Concomitant]
  5. AVANDIA [Concomitant]

REACTIONS (6)
  - BLOOD GLUCOSE DECREASED [None]
  - BLOOD GLUCOSE INCREASED [None]
  - FEELING HOT [None]
  - HYPERHIDROSIS [None]
  - INJECTION SITE BRUISING [None]
  - TREMOR [None]
